FAERS Safety Report 6842836-3 (Version None)
Quarter: 2010Q3

REPORT INFORMATION
  Report Type: 
  Country: None (occurrence: None)
  Receive Date: 20100714
  Receipt Date: 20070806
  Transmission Date: 20110219
  Serious: No
  Sender: FDA-Public Use
  Company Number: US-PFIZER INC-2007066532

PATIENT
  Sex: Female
  Weight: 60.454 kg

DRUGS (16)
  1. CHANTIX [Suspect]
     Indication: SMOKING CESSATION THERAPY
     Dates: start: 20070701
  2. EFFEXOR [Concomitant]
  3. LASIX [Concomitant]
  4. TOPROL-XL [Concomitant]
  5. PROTONIX [Concomitant]
  6. PREMPRO [Concomitant]
  7. FOLIC ACID [Concomitant]
  8. FIBRE, DIETARY [Concomitant]
  9. SYNTHROID [Concomitant]
  10. ZOLPIDEM TARTRATE [Concomitant]
  11. MICARDIS HCT [Concomitant]
  12. METFORMIN/PIOGLITAZONE [Concomitant]
     Indication: DIABETES MELLITUS
  13. ACTONEL [Concomitant]
  14. POTASSIUM CHLORIDE [Concomitant]
  15. MECLOZINE HYDROCHLORIDE [Concomitant]
     Indication: LABYRINTHITIS
  16. MELOXICAM [Concomitant]

REACTIONS (1)
  - VOMITING [None]
